FAERS Safety Report 18211378 (Version 3)
Quarter: 2020Q4

REPORT INFORMATION
  Report Type: Report from Study
  Country: KR (occurrence: KR)
  Receive Date: 20200831
  Receipt Date: 20201009
  Transmission Date: 20210113
  Serious: Yes (Life-Threatening, Hospitalization)
  Sender: FDA-Public Use
  Company Number: KR-CELLTRION INC.-2020KR026434

PATIENT

DRUGS (13)
  1. VITAMINS NOS [Concomitant]
     Active Substance: VITAMINS
     Indication: PROPHYLAXIS
     Dosage: 1 VIAL
     Route: 042
     Dates: start: 20200826, end: 20200829
  2. TRIDOL [Concomitant]
     Active Substance: TRAMADOL HYDROCHLORIDE
     Indication: PROPHYLAXIS
     Dosage: 100 MG
     Route: 042
     Dates: start: 20200827, end: 20200829
  3. FILGRASTIM [Concomitant]
     Active Substance: FILGRASTIM
     Indication: PROPHYLAXIS
     Dosage: 150 MCG
     Route: 042
     Dates: start: 20200826, end: 20200826
  4. WINUF [Concomitant]
     Indication: PROPHYLAXIS
     Dosage: 1450 ML
     Route: 042
     Dates: start: 20200826, end: 20200829
  5. HERZUMA [Suspect]
     Active Substance: TRASTUZUMAB-PKRB
     Indication: BLADDER CANCER
     Dosage: 408 MG
     Route: 042
     Dates: start: 20200803, end: 20200803
  6. PACLITAXEL. [Suspect]
     Active Substance: PACLITAXEL
     Indication: BLADDER CANCER
     Dosage: 266 MG
     Route: 042
     Dates: start: 20200803, end: 20200803
  7. ACECLOFENAC [Concomitant]
     Active Substance: ACECLOFENAC
     Indication: PROPHYLAXIS
     Dosage: 100 MG
     Route: 048
     Dates: start: 20200803
  8. CHLORPHENIRAMINE [CHLORPHENAMINE] [Concomitant]
     Active Substance: CHLORPHENIRAMINE
     Indication: PROPHYLAXIS
     Dosage: 4 MG
     Route: 042
     Dates: start: 20200803
  9. MGO [Concomitant]
     Active Substance: MAGNESIUM OXIDE
     Indication: CONSTIPATION
     Dosage: 1 DOSAGE FORM
     Route: 048
     Dates: start: 20200720
  10. DEXAMETHASONE. [Concomitant]
     Active Substance: DEXAMETHASONE
     Indication: PROPHYLAXIS
     Dosage: 10 MG
     Route: 042
     Dates: start: 20200803
  11. ALBUMIN [Concomitant]
     Active Substance: ALBUMIN HUMAN
     Indication: PROPHYLAXIS
     Dosage: 100 ML
     Route: 042
     Dates: start: 20200827, end: 20200827
  12. FAMOTIDINE. [Concomitant]
     Active Substance: FAMOTIDINE
     Indication: PROPHYLAXIS
     Dosage: 20 MG
     Route: 042
     Dates: start: 20200803
  13. FAMOTIDINE. [Concomitant]
     Active Substance: FAMOTIDINE
     Indication: PROPHYLAXIS
     Dosage: 40 MG
     Route: 048
     Dates: start: 20200803

REACTIONS (4)
  - Hypokalaemia [Recovered/Resolved]
  - Off label use [Unknown]
  - Diarrhoea [Recovered/Resolved]
  - Hypophagia [Not Recovered/Not Resolved]

NARRATIVE: CASE EVENT DATE: 20200812
